FAERS Safety Report 6903779-X (Version None)
Quarter: 2010Q3

REPORT INFORMATION
  Report Type: 
  Country: None (occurrence: None)
  Receive Date: 20100804
  Receipt Date: 20081208
  Transmission Date: 20110219
  Serious: Yes (Other)
  Sender: FDA-Public Use
  Company Number: US-PFIZER INC-2008087675

PATIENT
  Sex: Male
  Weight: 90.7 kg

DRUGS (7)
  1. LYRICA [Suspect]
     Indication: NEURALGIA
     Dosage: 75 MG, 2X/DAY
     Dates: start: 20080418, end: 20080701
  2. LYRICA [Suspect]
     Indication: PARAESTHESIA
  3. TOPROL-XL [Concomitant]
  4. DILTIAZEM [Concomitant]
  5. ACETYLSALICYLIC ACID SRT [Concomitant]
  6. FLOMAX [Concomitant]
     Dosage: UNK
  7. LISINOPRIL [Concomitant]
     Dosage: UNK

REACTIONS (3)
  - ADVERSE DRUG REACTION [None]
  - DEPRESSION [None]
  - SUICIDAL IDEATION [None]
